FAERS Safety Report 21042049 (Version 1)
Quarter: 2022Q3

REPORT INFORMATION
  Report Type: Spontaneous
  Country: DE (occurrence: DE)
  Receive Date: 20220705
  Receipt Date: 20220705
  Transmission Date: 20221026
  Serious: Yes (Hospitalization)
  Sender: FDA-Public Use
  Company Number: DE-NOVARTISPH-NVSC2022DE146722

PATIENT
  Age: 71 Year
  Sex: Female
  Weight: 102 kg

DRUGS (15)
  1. ADALIMUMAB [Suspect]
     Active Substance: ADALIMUMAB
     Indication: Rheumatoid arthritis
     Dosage: UNK
     Route: 065
     Dates: start: 202104, end: 202106
  2. PREDNISOLONE [Concomitant]
     Active Substance: PREDNISOLONE
     Indication: Product used for unknown indication
     Dosage: 2 MG, QD
     Route: 065
     Dates: start: 201105
  3. TORSEMIDE [Concomitant]
     Active Substance: TORSEMIDE
     Indication: Hypertension
     Dosage: 5 MG, QD
     Route: 065
     Dates: start: 2011
  4. AMIODARONE [Concomitant]
     Active Substance: AMIODARONE
     Indication: Arrhythmia
     Dosage: 200 MG, QD
     Route: 065
     Dates: start: 202011
  5. METOPROLOL [Concomitant]
     Active Substance: METOPROLOL
     Indication: Mitral valve incompetence
     Dosage: 23.75 MG, QD
     Route: 065
     Dates: start: 201701
  6. APIXABAN [Concomitant]
     Active Substance: APIXABAN
     Indication: Peripheral artery occlusion
     Dosage: 5 MG, QD
     Route: 065
     Dates: start: 201701
  7. APIXABAN [Concomitant]
     Active Substance: APIXABAN
     Indication: Bundle branch block left
  8. CHOLECALCIFEROL [Concomitant]
     Active Substance: CHOLECALCIFEROL
     Indication: Prophylaxis
     Dosage: 20000 IU, BIW
     Route: 065
     Dates: start: 202106
  9. PANTOPRAZOLE SODIUM [Concomitant]
     Active Substance: PANTOPRAZOLE SODIUM
     Indication: Prophylaxis
     Dosage: 40 MG, QD
     Route: 065
     Dates: start: 2018
  10. METHOTREXATE [Concomitant]
     Active Substance: METHOTREXATE
     Indication: Rheumatoid arthritis
     Dosage: UNK
     Route: 065
     Dates: start: 201105, end: 201107
  11. METHOTREXATE [Concomitant]
     Active Substance: METHOTREXATE
     Dosage: UNK
     Route: 065
     Dates: start: 201110, end: 201203
  12. METHOTREXATE [Concomitant]
     Active Substance: METHOTREXATE
     Dosage: UNK
     Route: 065
     Dates: start: 201706, end: 201806
  13. LEVOTHYROXINE [Concomitant]
     Active Substance: LEVOTHYROXINE
     Indication: Post procedural hypothyroidism
     Dosage: 100 MG, QD
     Route: 065
     Dates: start: 1978
  14. ROSUVASTATIN [Concomitant]
     Active Substance: ROSUVASTATIN
     Indication: Hyperlipidaemia
     Dosage: 10 MG, QD
     Route: 065
     Dates: start: 2020
  15. RAMIPRIL [Concomitant]
     Active Substance: RAMIPRIL
     Indication: Hypertension
     Dosage: 5 MG, QD
     Route: 065
     Dates: start: 2011

REACTIONS (4)
  - Hypertensive crisis [Recovered/Resolved]
  - White blood cell count abnormal [Unknown]
  - C-reactive protein abnormal [Unknown]
  - Red blood cell sedimentation rate abnormal [Unknown]

NARRATIVE: CASE EVENT DATE: 20220203
